FAERS Safety Report 10221734 (Version 1)
Quarter: 2014Q2

REPORT INFORMATION
  Report Type: Spontaneous
  Country: US (occurrence: US)
  Receive Date: 20140606
  Receipt Date: 20140606
  Transmission Date: 20141212
  Serious: Yes (Other)
  Sender: FDA-Public Use
  Company Number: US-GLAXOSMITHKLINE-A1075864A

PATIENT
  Age: 57 Year
  Sex: Male

DRUGS (1)
  1. OFATUMUMAB [Suspect]
     Indication: CHRONIC LYMPHOCYTIC LEUKAEMIA REFRACTORY
     Route: 065

REACTIONS (6)
  - Nocardiosis [Unknown]
  - Brain mass [Unknown]
  - Brain operation [Unknown]
  - Stem cell transplant [Unknown]
  - Chronic lymphocytic leukaemia [Unknown]
  - Headache [Unknown]
